FAERS Safety Report 6116705-0 (Version None)
Quarter: 2009Q1

REPORT INFORMATION
  Report Type: 
  Country: None (occurrence: None)
  Receive Date: 20090314
  Receipt Date: 20081208
  Transmission Date: 20090719
  Serious: No
  Sender: FDA-Public Use
  Company Number: US-ABBOTT-08P-163-0491660-00

PATIENT
  Sex: Female
  Weight: 99.88 kg

DRUGS (3)
  1. HUMIRA [Suspect]
     Indication: PSORIASIS
     Route: 058
     Dates: start: 20081127, end: 20081204
  2. HUMIRA [Suspect]
     Dates: start: 20081204
  3. ACTIVELLA [Concomitant]
     Indication: HORMONE REPLACEMENT THERAPY
     Dates: start: 20040101

REACTIONS (1)
  - PRURITUS [None]
